FAERS Safety Report 23037343 (Version 1)
Quarter: 2023Q4

REPORT INFORMATION
  Report Type: Spontaneous
  Country: EG (occurrence: EG)
  Receive Date: 20231006
  Receipt Date: 20231006
  Transmission Date: 20240110
  Serious: Yes (Other)
  Sender: FDA-Public Use
  Company Number: EG-002147023-NVSC2022EG296787

PATIENT
  Age: 42 Year
  Sex: Female

DRUGS (9)
  1. COSENTYX [Suspect]
     Active Substance: SECUKINUMAB
     Dosage: 150 MG, QMO (NO LOADING DOSE) (MAINTENANCE DOSE OF 1 PREFILLED PEN, MONTHLY)
     Route: 058
  2. COSENTYX [Suspect]
     Active Substance: SECUKINUMAB
     Indication: Psoriatic arthropathy
     Dosage: UNK (1 PREFILLED PEN EVERY MONTH WITHOUT LOADING DOSE (THE PATIENT IS STABLE ON THIS DOSE)
     Route: 058
     Dates: start: 20221222
  3. METHOTREXATE [Suspect]
     Active Substance: METHOTREXATE
     Indication: Immune system disorder
     Dosage: UNK (GRADUAL INCREASE OR DECREASE IN THE DOSE)
     Route: 065
     Dates: start: 202204, end: 202209
  4. METHOTREXATE [Suspect]
     Active Substance: METHOTREXATE
     Indication: Psoriatic arthropathy
  5. BIOTENE NOS [Concomitant]
     Active Substance: CETYLPYRIDINIUM CHLORIDE OR SODIUM FLUORIDE OR SODIUM MONOFLUOROPHOSPHATE OR GLUCOSE OXIDASE\LACTOFE
     Indication: Supplementation therapy
     Dosage: 1 DOSAGE FORM, QD (SHE TAKES THESE VITAMINS IN INTERMITTENT MANNER)
     Route: 048
  6. FOLIC ACID [Concomitant]
     Active Substance: FOLIC ACID
     Indication: Supplementation therapy
     Dosage: UNK (THE PATIENT DID NOT REMEMBER ONSET DATE)
     Route: 065
  7. Omega [Concomitant]
     Indication: Supplementation therapy
     Dosage: 1 DOSAGE FORM, QD (SHE TAKES THESE VITAMINS IN INTERMITTENT MANNER)
     Route: 048
  8. VITAMIN D [Concomitant]
     Active Substance: VITAMIN D NOS
     Indication: Supplementation therapy
     Dosage: 1 DOSAGE FORM, QOD (STARTED A WEEK AGO) (SHE TAKES THESE VITAMINS IN INTERMITTENT MANNER)
     Route: 048
  9. ZINC [Concomitant]
     Active Substance: ZINC
     Indication: Supplementation therapy
     Dosage: UNK (THE PATIENT DID NOT REMEMBER ONSET DATE)
     Route: 065

REACTIONS (19)
  - Feeling abnormal [Not Recovered/Not Resolved]
  - Palpitations [Not Recovered/Not Resolved]
  - Condition aggravated [Not Recovered/Not Resolved]
  - Immune system disorder [Not Recovered/Not Resolved]
  - Arthralgia [Not Recovered/Not Resolved]
  - Hair colour changes [Unknown]
  - Fatigue [Not Recovered/Not Resolved]
  - Gastritis [Not Recovered/Not Resolved]
  - Colitis [Not Recovered/Not Resolved]
  - Oral pain [Not Recovered/Not Resolved]
  - Memory impairment [Not Recovered/Not Resolved]
  - Dandruff [Not Recovered/Not Resolved]
  - Product use in unapproved indication [Unknown]
  - Product dose omission issue [Not Recovered/Not Resolved]
  - Lethargy [Not Recovered/Not Resolved]
  - Disturbance in attention [Not Recovered/Not Resolved]
  - Mouth ulceration [Not Recovered/Not Resolved]
  - Alopecia [Not Recovered/Not Resolved]
  - Hypoaesthesia [Not Recovered/Not Resolved]

NARRATIVE: CASE EVENT DATE: 20220401
